FAERS Safety Report 24294199 (Version 1)
Quarter: 2024Q3

REPORT INFORMATION
  Report Type: Spontaneous
  Country: US (occurrence: US)
  Receive Date: 20240906
  Receipt Date: 20240906
  Transmission Date: 20241017
  Serious: No
  Sender: DOMPE FARMACEUTICI
  Company Number: US-FARMAPROD-202308-202405-1942

PATIENT
  Sex: Female
  Weight: 45.36 kg

DRUGS (2)
  1. OXERVATE [Suspect]
     Active Substance: CENEGERMIN-BKBJ
     Indication: Neurotrophic keratopathy
     Route: 047
     Dates: start: 20240502
  2. OXERVATE [Suspect]
     Active Substance: CENEGERMIN-BKBJ

REACTIONS (7)
  - Eye swelling [Recovering/Resolving]
  - Eye pain [Unknown]
  - Headache [Recovered/Resolved with Sequelae]
  - Rhinitis [Unknown]
  - Fatigue [Recovering/Resolving]
  - Gastrointestinal disorder [Recovering/Resolving]
  - Photophobia [Recovering/Resolving]
